FAERS Safety Report 10854917 (Version 1)
Quarter: 2015Q1

REPORT INFORMATION
  Report Type: Spontaneous
  Country: ID (occurrence: None)
  Receive Date: 20150218
  Receipt Date: 20150218
  Transmission Date: 20150721
  Serious: Yes (Disabling)
  Sender: FDA-Public Use
  Company Number: None

PATIENT
  Age: 57 Year
  Sex: Male
  Weight: 65 kg

DRUGS (2)
  1. LIVFTIRACETAM [Suspect]
     Active Substance: LEVETIRACETAM
     Indication: LOSS OF CONSCIOUSNESS
     Dosage: 1 PILL
     Route: 048
  2. MVI [Concomitant]
     Active Substance: VITAMINS

REACTIONS (1)
  - Somnolence [None]

NARRATIVE: CASE EVENT DATE: 20150213
